FAERS Safety Report 6159312-6 (Version None)
Quarter: 2009Q2

REPORT INFORMATION
  Report Type: 
  Country: None (occurrence: None)
  Receive Date: 20090417
  Receipt Date: 20090414
  Transmission Date: 20091009
  Serious: Yes (Death)
  Sender: FDA-Public Use
  Company Number: US-ABBOTT-09P-163-0568282-00

PATIENT
  Sex: Female
  Weight: 49.9 kg

DRUGS (3)
  1. HUMIRA [Suspect]
     Indication: CROHN'S DISEASE
     Dosage: 1 SHOT 1 PER WEEK
     Dates: start: 20081102, end: 20090214
  2. VITAMIN TAB [Concomitant]
     Indication: DRUG USE FOR UNKNOWN INDICATION
     Dosage: 1 PILL ONCE DAILY
     Route: 048
     Dates: start: 20090101, end: 20090214
  3. TYLENOL [Concomitant]
     Indication: HEADACHE
     Dosage: 2 PILLS A DAY
     Route: 048
     Dates: start: 20090204, end: 20090204

REACTIONS (2)
  - ABORTION SPONTANEOUS [None]
  - PAIN [None]
